FAERS Safety Report 24934668 (Version 1)
Quarter: 2025Q1

REPORT INFORMATION
  Report Type: Report from Study
  Country: US (occurrence: US)
  Receive Date: 20250206
  Receipt Date: 20250206
  Transmission Date: 20250409
  Serious: No
  Sender: EXELIXIS
  Company Number: US-EXELIXIS-EXL-2024-001466

PATIENT
  Age: 38 Year
  Sex: Female

DRUGS (5)
  1. CABOMETYX [Suspect]
     Active Substance: CABOZANTINIB S-MALATE
     Indication: Breast angiosarcoma
     Dosage: 40 MG, QD
     Dates: start: 20241001
  2. OPDIVO [Suspect]
     Active Substance: NIVOLUMAB
     Indication: Breast angiosarcoma
     Dosage: UNK, Q4WEEKS
  3. METFORMIN [Concomitant]
     Active Substance: METFORMIN HYDROCHLORIDE
  4. LOPERAMIDE [Concomitant]
     Active Substance: LOPERAMIDE
  5. PROCHLORPERAZINE [Concomitant]
     Active Substance: PROCHLORPERAZINE

REACTIONS (9)
  - Diarrhoea [Unknown]
  - Dizziness [Unknown]
  - Fatigue [Unknown]
  - Nausea [Unknown]
  - Dysgeusia [Unknown]
  - Pruritus [Unknown]
  - Neuralgia [Unknown]
  - Cold-stimulus headache [Unknown]
  - Off label use [Unknown]

NARRATIVE: CASE EVENT DATE: 20241001
